FAERS Safety Report 23976462 (Version 1)
Quarter: 2024Q2

REPORT INFORMATION
  Report Type: Spontaneous
  Country: US (occurrence: None)
  Receive Date: 20240613
  Receipt Date: 20240613
  Transmission Date: 20240715
  Serious: Yes (unspecified)
  Sender: FDA-Public Use
  Company Number: None

PATIENT
  Age: 47 Year
  Sex: Female
  Weight: 90 kg

DRUGS (4)
  1. VILAZODONE [Suspect]
     Active Substance: VILAZODONE
     Indication: Major depression
     Dosage: 1 TABLET DAILY ORAL?
     Route: 048
     Dates: start: 20240530, end: 20240612
  2. MAGNESIUM [Concomitant]
  3. b complex [Concomitant]
  4. VITAMIN D [Concomitant]
     Active Substance: VITAMIN D NOS

REACTIONS (9)
  - Irritability [None]
  - Anger [None]
  - Dysgeusia [None]
  - Frustration tolerance decreased [None]
  - Hyperacusis [None]
  - Parosmia [None]
  - Paraesthesia [None]
  - Discomfort [None]
  - Crying [None]

NARRATIVE: CASE EVENT DATE: 20240612
